FAERS Safety Report 25179739 (Version 1)
Quarter: 2025Q2

REPORT INFORMATION
  Report Type: Spontaneous
  Country: CN (occurrence: CN)
  Receive Date: 20250409
  Receipt Date: 20250409
  Transmission Date: 20250716
  Serious: Yes (Hospitalization)
  Sender: ROCHE
  Company Number: CN-ROCHE-10000255191

PATIENT
  Age: 26 Year
  Sex: Male

DRUGS (1)
  1. IBANDRONATE SODIUM [Suspect]
     Active Substance: IBANDRONATE SODIUM
     Indication: Product used for unknown indication
     Route: 055

REACTIONS (2)
  - Pneumonitis chemical [Recovered/Resolved]
  - Occupational exposure to product [Unknown]
